FAERS Safety Report 5310732-9 (Version None)
Quarter: 2007Q2

REPORT INFORMATION
  Report Type: 
  Country: None (occurrence: None)
  Receive Date: 20070428
  Receipt Date: 20070416
  Transmission Date: 20071010
  Serious: Yes (Other)
  Sender: FDA-Public Use
  Company Number: US-PFIZER INC-2007030487

PATIENT
  Sex: Female

DRUGS (6)
  1. DILANTIN [Suspect]
     Indication: CONVULSION
     Dates: end: 20050801
  2. DEPO-PROVERA 150MG/ML 1ML SYRINGE [Suspect]
     Indication: MENORRHAGIA
  3. KLONOPIN [Concomitant]
  4. TEGRETOL [Concomitant]
     Indication: CONVULSION
  5. TOPAMAX [Concomitant]
     Indication: CONVULSION
  6. GEODON [Concomitant]
     Indication: CONVULSION

REACTIONS (4)
  - ALOPECIA [None]
  - AMENORRHOEA [None]
  - MENORRHAGIA [None]
  - WEIGHT INCREASED [None]
